FAERS Safety Report 18667556 (Version 1)
Quarter: 2020Q4

REPORT INFORMATION
  Report Type: Report from Study
  Country: None (occurrence: JP)
  Receive Date: 20201228
  Receipt Date: 20201228
  Transmission Date: 20210114
  Serious: Yes (Death)
  Sender: FDA-Public Use
  Company Number: JP-UNICHEM PHARMACEUTICALS (USA) INC-UCM202012-001497

PATIENT
  Sex: Male
  Weight: 87 kg

DRUGS (1)
  1. TADALAFIL. [Suspect]
     Active Substance: TADALAFIL
     Indication: INTENTIONAL PRODUCT MISUSE
     Dosage: UNKNOWN

REACTIONS (3)
  - Loss of consciousness [Fatal]
  - Intentional product misuse [Fatal]
  - Sudden cardiac death [Fatal]
